FAERS Safety Report 5332761-1 (Version None)
Quarter: 2007Q2

REPORT INFORMATION
  Report Type: 
  Country: None (occurrence: None)
  Receive Date: 20070518
  Receipt Date: 20070502
  Transmission Date: 20071010
  Serious: Yes (Life-Threatening, Hospitalization)
  Sender: FDA-Public Use
  Company Number: DSA_29869_2007

PATIENT
  Sex: Female

DRUGS (4)
  1. TAVOR /00273201/ (TAVOR) [Suspect]
     Dosage: (ORAL)
     Route: 048
     Dates: start: 20070502, end: 20070502
  2. LITHIUM CARBONATE [Suspect]
     Dosage: (ORAL)
     Route: 048
     Dates: start: 20070502, end: 20070502
  3. STANGYL /00051802/ (STANGYL) (NOT SPECIFIED) [Suspect]
     Dosage: (ORAL)
     Route: 048
     Dates: start: 20070502, end: 20070502
  4. TAXILAN /00162501/ (TAXILAN) (NOT SPECIFIED) [Suspect]
     Dosage: (ORAL)
     Route: 048
     Dates: start: 20070502, end: 20070502

REACTIONS (4)
  - BOWEL SOUNDS ABNORMAL [None]
  - MULTIPLE DRUG OVERDOSE INTENTIONAL [None]
  - SOMNOLENCE [None]
  - SUICIDE ATTEMPT [None]
